FAERS Safety Report 8358434-9 (Version None)
Quarter: 2012Q2

REPORT INFORMATION
  Report Type: 
  Country: None (occurrence: None)
  Receive Date: 20120514
  Receipt Date: 20110907
  Transmission Date: 20120825
  Serious: No
  Sender: FDA-Public Use
  Company Number: US-TEVA-2011004722

PATIENT
  Sex: Female
  Weight: 95.34 kg

DRUGS (5)
  1. VITAMIN TAB [Concomitant]
  2. CRESTOR [Concomitant]
  3. NUVIGIL [Suspect]
     Indication: FATIGUE
     Dosage: 150 MILLIGRAM;
     Route: 048
     Dates: start: 20110901, end: 20110901
  4. CELEBREX [Concomitant]
  5. INDERAL [Concomitant]

REACTIONS (2)
  - INSOMNIA [None]
  - EXPIRED DRUG ADMINISTERED [None]
